FAERS Safety Report 7115786-5 (Version None)
Quarter: 2010Q4

REPORT INFORMATION
  Report Type: 
  Country: None (occurrence: None)
  Receive Date: 20101122
  Receipt Date: 20101115
  Transmission Date: 20110411
  Serious: Yes (Other)
  Sender: FDA-Public Use
  Company Number: US-PFIZER INC-2010148670

PATIENT
  Sex: Female
  Weight: 68 kg

DRUGS (1)
  1. LIPITOR [Suspect]
     Indication: BLOOD CHOLESTEROL INCREASED
     Dosage: UNK MG, UNK
     Route: 048

REACTIONS (3)
  - CAROTID ARTERY OCCLUSION [None]
  - MUSCULAR WEAKNESS [None]
  - MYALGIA [None]
